FAERS Safety Report 8438761-7 (Version None)
Quarter: 2012Q2

REPORT INFORMATION
  Report Type: 
  Country: None (occurrence: None)
  Receive Date: 20120605
  Receipt Date: 20120521
  Transmission Date: 20120825
  Serious: Yes (Death, Hospitalization, Other)
  Sender: FDA-Public Use
  Company Number: 2012SP004951

PATIENT
  Age: 71 Year
  Sex: Male
  Weight: 102.7 kg

DRUGS (24)
  1. CALCIUM GLUCONATE [Concomitant]
  2. FUROSEMIDE [Concomitant]
  3. IPRATROPIUM BROMIDE [Concomitant]
  4. ADENOSINE [Concomitant]
  5. ESMOLOL HCL [Concomitant]
  6. INTEGRILIN [Suspect]
     Indication: MYOCARDIAL INFARCTION
     Dosage: 180 MCG;;IV
     Route: 042
     Dates: start: 20120113, end: 20120113
  7. AMIODARONE HYDROCHLORIDE [Concomitant]
  8. VASOPRESSIN [Concomitant]
  9. INSULIN [Concomitant]
  10. HEPARIN [Concomitant]
  11. PROPOFOL [Concomitant]
  12. MIRINONE [Concomitant]
  13. DIURIL [Concomitant]
  14. ZOSYN [Concomitant]
  15. FENTANYL [Concomitant]
  16. MAGNESIUM SULFATE [Concomitant]
  17. DOBUTAMINE HCL [Concomitant]
  18. ALBUTEROL [Concomitant]
  19. HYDROCORTISONE [Concomitant]
  20. ALBUMIN (HUMAN) [Concomitant]
  21. FLOLAN [Concomitant]
  22. CISATRACURIUM BESYLATE [Concomitant]
  23. NOREPINEPHRINE BITARTRATE [Concomitant]
  24. METHYLPREDNIS [Concomitant]

REACTIONS (9)
  - HAEMORRHAGE [None]
  - THROMBOCYTOPENIA [None]
  - CARDIOGENIC SHOCK [None]
  - BANDAEMIA [None]
  - PULMONARY ALVEOLAR HAEMORRHAGE [None]
  - PYREXIA [None]
  - HAEMATURIA [None]
  - BLOOD CULTURE POSITIVE [None]
  - PERIPHERAL ISCHAEMIA [None]
